FAERS Safety Report 4512422-9 (Version None)
Quarter: 2004Q4

REPORT INFORMATION
  Report Type: 
  Country: None (occurrence: None)
  Receive Date: 20041123
  Receipt Date: 20041104
  Transmission Date: 20050328
  Serious: Yes (Death)
  Sender: FDA-Public Use
  Company Number: B0350480A

PATIENT
  Sex: 0

DRUGS (1)
  1. LANOXIN [Suspect]

REACTIONS (7)
  - CARDIOACTIVE DRUG LEVEL ABOVE THERAPEUTIC [None]
  - HEART RATE DECREASED [None]
  - NODAL RHYTHM [None]
  - SINUS ARREST [None]
  - THERAPEUTIC AGENT TOXICITY [None]
  - VENTRICULAR ARRHYTHMIA [None]
  - VENTRICULAR TACHYCARDIA [None]
